FAERS Safety Report 6171380-4 (Version None)
Quarter: 2009Q2

REPORT INFORMATION
  Report Type: 
  Country: None (occurrence: None)
  Receive Date: 20090429
  Receipt Date: 20090428
  Transmission Date: 20091009
  Serious: Yes (Hospitalization, Other)
  Sender: FDA-Public Use
  Company Number: US-PFIZER INC-2009182099

PATIENT
  Sex: Female

DRUGS (3)
  1. NARDIL [Suspect]
     Indication: PANIC ATTACK
     Dosage: 15 MG, 3X/DAY
  2. NARDIL [Suspect]
     Indication: ANXIETY
  3. CHLORDIAZEPOXIDE [Concomitant]
     Dosage: UNK

REACTIONS (2)
  - FALL [None]
  - UPPER LIMB FRACTURE [None]
